FAERS Safety Report 11504889 (Version 1)
Quarter: 2015Q3

REPORT INFORMATION
  Report Type: Spontaneous
  Country: US (occurrence: US)
  Receive Date: 20150915
  Receipt Date: 20150915
  Transmission Date: 20151125
  Serious: No
  Sender: FDA-Public Use
  Company Number: US-ROCHE-797369

PATIENT
  Age: 47 Year
  Sex: Male
  Weight: 104.3 kg

DRUGS (3)
  1. RIBAVIRIN. [Suspect]
     Active Substance: RIBAVIRIN
     Indication: HEPATITIS C
     Route: 048
  2. PEGASYS [Suspect]
     Active Substance: PEGINTERFERON ALFA-2A
     Indication: HEPATITIS C
     Dosage: FREQUENCY: WEEKLY, THE PATIENT RECEIVED 3 INJECTION IN TOTAL AND THIRD INJECTION ON 14 AUGUST 2011
     Route: 058
  3. DIURETIC NOS [Concomitant]
     Active Substance: UNSPECIFIED INGREDIENT
     Route: 065

REACTIONS (4)
  - Chills [Unknown]
  - Headache [Unknown]
  - Myalgia [Unknown]
  - Feeling hot [Unknown]

NARRATIVE: CASE EVENT DATE: 201107
